FAERS Safety Report 15701818 (Version 3)
Quarter: 2019Q1

REPORT INFORMATION
  Report Type: Spontaneous
  Country: US (occurrence: US)
  Receive Date: 20181208
  Receipt Date: 20190123
  Transmission Date: 20190417
  Serious: No
  Sender: FDA-Public Use
  Company Number: US-JNJFOC-20181126938

PATIENT
  Age: 85 Year
  Sex: Male
  Weight: 82.56 kg

DRUGS (1)
  1. ZYTIGA [Suspect]
     Active Substance: ABIRATERONE ACETATE
     Indication: PROSTATE CANCER
     Dosage: 4 HUGE TABLETS
     Route: 048
     Dates: start: 201809

REACTIONS (8)
  - Muscle spasms [Not Recovered/Not Resolved]
  - Wrong technique in product usage process [Unknown]
  - Off label use [Unknown]
  - Product use complaint [Not Recovered/Not Resolved]
  - Product size issue [Unknown]
  - Mucous membrane disorder [Not Recovered/Not Resolved]
  - Irritability [Not Recovered/Not Resolved]
  - Retching [Not Recovered/Not Resolved]

NARRATIVE: CASE EVENT DATE: 201808
